FAERS Safety Report 5547452-1 (Version None)
Quarter: 2007Q4

REPORT INFORMATION
  Report Type: 
  Country: None (occurrence: None)
  Receive Date: 20071128
  Receipt Date: 20070608
  Transmission Date: 20080405
  Serious: Yes (Other)
  Sender: FDA-Public Use
  Company Number: 2007047719

PATIENT
  Sex: 0

DRUGS (2)
  1. LIPITOR [Suspect]
  2. CRESTOR [Suspect]

REACTIONS (1)
  - RHABDOMYOLYSIS [None]
